FAERS Safety Report 7756983-5 (Version None)
Quarter: 2011Q3

REPORT INFORMATION
  Report Type: 
  Country: None (occurrence: None)
  Receive Date: 20110916
  Receipt Date: 20110916
  Transmission Date: 20111222
  Serious: Yes (Other)
  Sender: FDA-Public Use
  Company Number: None

PATIENT
  Age: 47 Year
  Sex: Female
  Weight: 70.306 kg

DRUGS (1)
  1. SPRIX [Suspect]
     Indication: PAIN
     Dosage: 15.75 MG
     Route: 045
     Dates: start: 20110911, end: 20110911

REACTIONS (3)
  - VOMITING [None]
  - BLISTER [None]
  - RASH [None]
